FAERS Safety Report 4284482-4 (Version None)
Quarter: 2004Q1

REPORT INFORMATION
  Report Type: 
  Country: None (occurrence: None)
  Receive Date: 20040130
  Receipt Date: 20040130
  Transmission Date: 20041129
  Serious: Yes (Life-Threatening)
  Sender: FDA-Public Use
  Company Number: None

PATIENT
  Age: 60 Year
  Sex: Female

DRUGS (5)
  1. PREMPRO [Suspect]
     Dosage: 1 X DAY
     Dates: start: 19960101
  2. PREMPRO [Suspect]
     Dates: start: 19990101
  3. CHEMO [Concomitant]
  4. RADIATION [Concomitant]
  5. TAMOXIFEN [Concomitant]

REACTIONS (1)
  - BREAST CANCER [None]
